FAERS Safety Report 5244456-3 (Version None)
Quarter: 2007Q1

REPORT INFORMATION
  Report Type: 
  Country: None (occurrence: None)
  Receive Date: 20070222
  Receipt Date: 20070221
  Transmission Date: 20070707
  Serious: Yes (Hospitalization, Other)
  Sender: FDA-Public Use
  Company Number: US-BRISTOL-MYERS SQUIBB COMPANY-13687249

PATIENT
  Age: 75 Year
  Sex: Male
  Weight: 72 kg

DRUGS (2)
  1. COUMADIN [Suspect]
     Indication: CEREBROVASCULAR ACCIDENT
     Dosage: 5 MG X 5 DAYS/3.5 MG X 2 DAYS INCREASED TO 7.5 MG X 5 DAYS/5 MG X 2 DAYS
  2. PREVACID [Concomitant]

REACTIONS (2)
  - CHOLECYSTECTOMY [None]
  - INTERNATIONAL NORMALISED RATIO DECREASED [None]
